FAERS Safety Report 9854660 (Version 1)
Quarter: 2014Q1

REPORT INFORMATION
  Report Type: Spontaneous
  Country: US (occurrence: US)
  Receive Date: 20140130
  Receipt Date: 20140130
  Transmission Date: 20141002
  Serious: No
  Sender: FDA-Public Use
  Company Number: US-BIOGENIDEC-2014BI008161

PATIENT
  Age: 51 Year
  Sex: Male

DRUGS (7)
  1. TECFIDERA [Suspect]
     Indication: MULTIPLE SCLEROSIS
     Route: 048
     Dates: start: 20140112
  2. KLONOPIN [Concomitant]
  3. NEURONTIN [Concomitant]
  4. OXYCODONE [Concomitant]
  5. IBUPROFEN [Concomitant]
  6. ZANAFLEX [Concomitant]
  7. FLEXERIL [Concomitant]

REACTIONS (1)
  - Headache [Recovered/Resolved]
